FAERS Safety Report 21619378 (Version 1)
Quarter: 2022Q4

REPORT INFORMATION
  Report Type: Spontaneous
  Country: ES (occurrence: ES)
  Receive Date: 20221120
  Receipt Date: 20221120
  Transmission Date: 20230113
  Serious: Yes (Hospitalization)
  Sender: FDA-Public Use
  Company Number: None

PATIENT
  Age: 89 Year
  Sex: Female
  Weight: 75 kg

DRUGS (3)
  1. PIPERACILLIN SODIUM\TAZOBACTAM SODIUM [Suspect]
     Active Substance: PIPERACILLIN SODIUM\TAZOBACTAM SODIUM
     Indication: Pyelonephritis acute
     Dosage: UNK (CADA 6H)
     Route: 042
     Dates: start: 20221018, end: 20221020
  2. CEFTRIAXONE [Suspect]
     Active Substance: CEFTRIAXONE
     Indication: Pyelonephritis acute
     Dosage: 2 G, Q24H (2 G CADA 24H)
     Route: 042
     Dates: start: 20221020, end: 20221025
  3. CEFDITOREN [Suspect]
     Active Substance: CEFDITOREN
     Indication: Pyelonephritis acute
     Dosage: 400 MG, Q12H (400 MG CADA 12H)
     Route: 065
     Dates: start: 20221025, end: 20221031

REACTIONS (1)
  - Clostridium difficile colitis [Recovering/Resolving]

NARRATIVE: CASE EVENT DATE: 20221103
